FAERS Safety Report 5622098-5 (Version None)
Quarter: 2008Q1

REPORT INFORMATION
  Report Type: 
  Country: None (occurrence: None)
  Receive Date: 20080201
  Receipt Date: 20080121
  Transmission Date: 20080703
  Serious: Yes (Hospitalization)
  Sender: FDA-Public Use
  Company Number: 2008002338

PATIENT
  Age: 59 Year
  Sex: Female

DRUGS (1)
  1. CETIRIZINE HCL [Suspect]
     Indication: DERMATITIS ATOPIC
     Dosage: 10 MG, ORAL
     Route: 048
     Dates: start: 20080115, end: 20080118

REACTIONS (1)
  - ARRHYTHMIA [None]
